FAERS Safety Report 5020265-5 (Version None)
Quarter: 2006Q2

REPORT INFORMATION
  Report Type: 
  Country: None (occurrence: None)
  Receive Date: 20060602
  Receipt Date: 20060515
  Transmission Date: 20061013
  Serious: Yes (Other)
  Sender: FDA-Public Use
  Company Number: FI200605003561

PATIENT
  Age: 75 Year
  Sex: Male

DRUGS (7)
  1. CYMBALTA [Suspect]
     Indication: DEPRESSION
     Dosage: 60 MG, DAILY (1/D), ORAL
     Route: 048
     Dates: start: 20060131, end: 20060202
  2. NEUROTOL (CARBAMAZEPINE) [Concomitant]
  3. TEMESTA   /NET/ (LORAZPEPAM) [Concomitant]
  4. NITRO (GLYCERYL TRINITRATE) [Concomitant]
  5. ENALAPRIL MALEATE [Concomitant]
  6. LIPITOR [Concomitant]
  7. PRIMASPAN (ACETYLSALICYLIC ACID) [Concomitant]

REACTIONS (1)
  - EPILEPSY [None]
